FAERS Safety Report 5390548-8 (Version None)
Quarter: 2007Q3

REPORT INFORMATION
  Report Type: 
  Country: None (occurrence: None)
  Receive Date: 20070718
  Receipt Date: 20070112
  Transmission Date: 20080115
  Serious: No
  Sender: FDA-Public Use
  Company Number: US-KINGPHARMUSA00001-K200700024

PATIENT

DRUGS (5)
  1. LEVOXYL [Suspect]
     Indication: HYPOTHYROIDISM
     Dosage: 25 MCG, QD
     Route: 048
     Dates: start: 20060401, end: 20070111
  2. LEVOXYL [Suspect]
     Dosage: 37.5 MCG, QD
     Route: 048
     Dates: start: 20070111
  3. NEURONTIN [Concomitant]
  4. KEPPRA [Concomitant]
  5. DEPAKOTE [Concomitant]

REACTIONS (3)
  - BLOOD THYROID STIMULATING HORMONE DECREASED [None]
  - DRUG INEFFECTIVE [None]
  - WEIGHT INCREASED [None]
